FAERS Safety Report 12527579 (Version 2)
Quarter: 2016Q3

REPORT INFORMATION
  Report Type: Spontaneous
  Country: US (occurrence: US)
  Receive Date: 20160705
  Receipt Date: 20160802
  Transmission Date: 20161109
  Serious: Yes (Other)
  Sender: FDA-Public Use
  Company Number: US-NOVEN PHARMACEUTICALS, INC.-US2016001626

PATIENT

DRUGS (29)
  1. PREMARIN [Suspect]
     Active Substance: ESTROGENS, CONJUGATED
     Indication: PRODUCT USED FOR UNKNOWN INDICATION
     Dosage: 0.625 MG/G, 2/WK
     Route: 067
  2. PROVIGIL [Suspect]
     Active Substance: MODAFINIL
     Indication: PRODUCT USED FOR UNKNOWN INDICATION
     Dosage: UNK, UNKNOWN
     Route: 065
  3. ALDACTONE [Suspect]
     Active Substance: SPIRONOLACTONE
     Indication: PRODUCT USED FOR UNKNOWN INDICATION
     Dosage: UNK, UNKNOWN
     Route: 065
  4. DILTIAZEM. [Concomitant]
     Active Substance: DILTIAZEM
  5. DEPAKOTE [Suspect]
     Active Substance: DIVALPROEX SODIUM
     Indication: PRODUCT USED FOR UNKNOWN INDICATION
     Dosage: UNK, UNKNOWN
     Route: 065
  6. AMBIEN [Concomitant]
     Active Substance: ZOLPIDEM TARTRATE
  7. VITAMIN D [Concomitant]
     Active Substance: CHOLECALCIFEROL
  8. VYTORIN [Concomitant]
     Active Substance: EZETIMIBE\SIMVASTATIN
  9. WELLBUTRIN [Concomitant]
     Active Substance: BUPROPION HYDROCHLORIDE
  10. SULFA [Concomitant]
     Active Substance: UNSPECIFIED INGREDIENT
  11. ZOLOFT [Suspect]
     Active Substance: SERTRALINE HYDROCHLORIDE
     Indication: PRODUCT USED FOR UNKNOWN INDICATION
     Dosage: UNK, UNKNOWN
     Route: 065
  12. METHYLPHENIDATE. [Concomitant]
     Active Substance: METHYLPHENIDATE
  13. ZEGERID [Concomitant]
     Active Substance: OMEPRAZOLE\SODIUM BICARBONATE
  14. ANTIHISTAMINES [Concomitant]
     Active Substance: ANTIHISTAMINES NOS
  15. SYNTHROID [Concomitant]
     Active Substance: LEVOTHYROXINE SODIUM
  16. BIOTIN [Concomitant]
     Active Substance: BIOTIN
  17. FOLIC ACID. [Concomitant]
     Active Substance: FOLIC ACID
  18. LACTULOSE. [Concomitant]
     Active Substance: LACTULOSE
  19. NASACORT [Concomitant]
     Active Substance: TRIAMCINOLONE ACETONIDE
  20. TRAMADOL. [Concomitant]
     Active Substance: TRAMADOL
  21. VALIUM [Concomitant]
     Active Substance: DIAZEPAM
  22. BUSPIRONE HCL [Concomitant]
     Active Substance: BUSPIRONE HYDROCHLORIDE
  23. FISH OIL [Concomitant]
     Active Substance: FISH OIL
  24. COMBIPATCH [Suspect]
     Active Substance: ESTRADIOL\NORETHINDRONE ACETATE
     Indication: PRODUCT USED FOR UNKNOWN INDICATION
     Dosage: UNK, UNKNOWN
     Route: 062
  25. LYRICA [Suspect]
     Active Substance: PREGABALIN
     Indication: PRODUCT USED FOR UNKNOWN INDICATION
     Dosage: UNK, BID
     Route: 065
  26. LAMICTAL [Concomitant]
     Active Substance: LAMOTRIGINE
  27. LISINOPRIL. [Concomitant]
     Active Substance: LISINOPRIL
  28. ROCEPHIN [Concomitant]
     Active Substance: CEFTRIAXONE SODIUM
  29. VSL#3 [Concomitant]
     Active Substance: PROBIOTICS NOS

REACTIONS (5)
  - Drug hypersensitivity [Unknown]
  - Depression [Unknown]
  - Skin reaction [Unknown]
  - Serotonin syndrome [Unknown]
  - Muscular weakness [Unknown]
